FAERS Safety Report 4433796-3 (Version None)
Quarter: 2004Q3

REPORT INFORMATION
  Report Type: 
  Country: None (occurrence: None)
  Receive Date: 20040824
  Receipt Date: 20040824
  Transmission Date: 20050211
  Serious: Yes (Life-Threatening, Hospitalization)
  Sender: FDA-Public Use
  Company Number: None

PATIENT
  Age: 17 Year
  Sex: Female
  Weight: 56.246 kg

DRUGS (8)
  1. PAXIL [Suspect]
     Indication: DEPRESSION
     Dosage: 30MGS  QD  ORAL
     Route: 048
     Dates: start: 20010818, end: 20010905
  2. ZOLOFT [Suspect]
     Indication: DEPRESSION
     Dosage: 100MGS  QHS  ORAL
     Route: 048
     Dates: start: 20010905, end: 20011212
  3. ZYPREXA [Concomitant]
  4. ZOLOFT [Concomitant]
  5. SEROQUEL [Concomitant]
  6. WELLBUTRIN [Concomitant]
  7. .. [Concomitant]
  8. WELLBUTRIN [Concomitant]

REACTIONS (3)
  - ANGER [None]
  - OVERDOSE [None]
  - SELF MUTILATION [None]
